FAERS Safety Report 4595607-5 (Version None)
Quarter: 2005Q1

REPORT INFORMATION
  Report Type: 
  Country: None (occurrence: None)
  Receive Date: 20050223
  Receipt Date: 20050223
  Transmission Date: 20050727
  Serious: No
  Sender: FDA-Public Use
  Company Number: None

PATIENT
  Age: 68 Year
  Sex: Male
  Weight: 44 kg

DRUGS (1)
  1. GATIFLOXACIN [Suspect]
     Indication: CHRONIC OBSTRUCTIVE AIRWAYS DISEASE EXACERBATED
     Dosage: 400 MG IV
     Route: 042
     Dates: start: 20041115

REACTIONS (4)
  - BLOOD PRESSURE DECREASED [None]
  - HYPERCAPNIA [None]
  - INFUSION RELATED REACTION [None]
  - TACHYCARDIA [None]
